FAERS Safety Report 4468662-0 (Version None)
Quarter: 2004Q3

REPORT INFORMATION
  Report Type: 
  Country: None (occurrence: None)
  Receive Date: 20040917
  Receipt Date: 20040526
  Transmission Date: 20050211
  Serious: No
  Sender: FDA-Public Use
  Company Number: US-JNJFOC-20040304492

PATIENT
  Age: 38 Year
  Sex: Female
  Weight: 73.0291 kg

DRUGS (2)
  1. ORTHO EVRA [Suspect]
     Indication: CONTRACEPTION
     Dosage: 1 DOSE(S), TRANSDERMAL
     Route: 062
     Dates: start: 20040312, end: 20040316
  2. ORTHO EVRA [Suspect]
     Indication: OVARIAN CYST
     Dosage: 1 DOSE(S), TRANSDERMAL
     Route: 062
     Dates: start: 20040312, end: 20040316

REACTIONS (3)
  - DIZZINESS [None]
  - HEART RATE INCREASED [None]
  - PALPITATIONS [None]
